FAERS Safety Report 5722557-0 (Version None)
Quarter: 2008Q2

REPORT INFORMATION
  Report Type: 
  Country: None (occurrence: None)
  Receive Date: 20080429
  Receipt Date: 20070914
  Transmission Date: 20081010
  Serious: No
  Sender: FDA-Public Use
  Company Number: US-ASTRAZENECA-2007UW21798

PATIENT
  Age: 50 Year
  Sex: Female
  Weight: 90.3 kg

DRUGS (5)
  1. NEXIUM [Suspect]
     Indication: GASTROOESOPHAGEAL REFLUX DISEASE
     Route: 048
  2. ALLEGRA [Concomitant]
  3. BUSPAR [Concomitant]
  4. WELLBUTRIN [Concomitant]
  5. DARVOCET [Concomitant]

REACTIONS (3)
  - CHEST PAIN [None]
  - DYSPHAGIA [None]
  - GASTRIC DISORDER [None]
